FAERS Safety Report 23108637 (Version 1)
Quarter: 2023Q4

REPORT INFORMATION
  Report Type: Spontaneous
  Country: AU (occurrence: AU)
  Receive Date: 20231026
  Receipt Date: 20231026
  Transmission Date: 20240110
  Serious: Yes (Other)
  Sender: FDA-Public Use
  Company Number: AU-PFIZER INC-PV202300172794

PATIENT
  Age: 4 Year
  Sex: Male

DRUGS (1)
  1. NGENLA [Suspect]
     Active Substance: SOMATROGON-GHLA
     Dosage: 8 MG, WEEKLY
     Dates: start: 202304

REACTIONS (2)
  - Myopia [Unknown]
  - Ophthalmological examination abnormal [Unknown]

NARRATIVE: CASE EVENT DATE: 20231018
